FAERS Safety Report 5624313-0 (Version None)
Quarter: 2008Q1

REPORT INFORMATION
  Report Type: 
  Country: None (occurrence: None)
  Receive Date: 20080213
  Receipt Date: 20080201
  Transmission Date: 20080703
  Serious: Yes (Other)
  Sender: FDA-Public Use
  Company Number: IT-ELI_LILLY_AND_COMPANY-IT200802000361

PATIENT
  Sex: Female

DRUGS (5)
  1. GEMZAR [Suspect]
     Indication: URETERIC CANCER
     Dosage: 1750 MG, PER CYCLE
     Route: 042
     Dates: start: 20071228, end: 20080110
  2. CISPLATIN [Concomitant]
     Indication: URETERIC CANCER
     Dosage: 78 MG, PER CYCLE
     Route: 042
     Dates: start: 20071228, end: 20080110
  3. ASPIRIN [Concomitant]
     Dosage: 100 MG, DAILY (1/D)
     Route: 048
  4. MODURETIC 5-50 [Concomitant]
     Dosage: 1 D/F, DAILY (1/D)
     Route: 048
  5. PERDIPINA [Concomitant]
     Dosage: 1 D/F, DAILY (1/D)
     Route: 048

REACTIONS (1)
  - THROMBOCYTHAEMIA [None]
